FAERS Safety Report 7338471-3 (Version None)
Quarter: 2011Q1

REPORT INFORMATION
  Report Type: 
  Country: None (occurrence: None)
  Receive Date: 20110308
  Receipt Date: 20110223
  Transmission Date: 20110831
  Serious: Yes (Hospitalization)
  Sender: FDA-Public Use
  Company Number: FR-ELI_LILLY_AND_COMPANY-FR201103001439

PATIENT
  Sex: Female
  Weight: 47.5 kg

DRUGS (14)
  1. DEBRIDAT [Concomitant]
  2. NEXIUM [Concomitant]
     Dosage: 20 MG, EACH EVENING
     Route: 048
     Dates: end: 20090629
  3. ALDACTONE [Concomitant]
     Dosage: 75 MG, EACH MORNING
     Route: 048
     Dates: end: 20090628
  4. APROVEL /FRA/ [Concomitant]
     Dosage: 75 MG, EACH MORNING
     Route: 048
     Dates: end: 20090628
  5. ANAFRANIL [Concomitant]
     Dosage: 25 MG, EACH EVENING
     Route: 048
     Dates: end: 20090628
  6. CIFLOX [Concomitant]
     Dosage: UNK, 2/D
  7. LYRICA [Concomitant]
     Dosage: 50 MG, 2/D
     Route: 048
     Dates: end: 20090628
  8. ALPRAZOLAM [Concomitant]
     Indication: ANXIETY
     Dosage: 0.25 MG, DAILY (1/D)
     Route: 048
  9. TRANSIPEG /FRA/ [Concomitant]
  10. CYMBALTA [Suspect]
     Dosage: 30 MG, EACH MORNING
     Route: 048
     Dates: end: 20090628
  11. ZOLPIDEM [Concomitant]
     Dosage: 10 MG, EACH EVENING
     Route: 048
  12. ZOLOFT [Concomitant]
     Dosage: 50 MG, EACH MORNING
     Route: 048
     Dates: end: 20090628
  13. FLECAINE [Concomitant]
     Dosage: 50 MG, EACH MORNING
     Route: 048
  14. URIDOZ [Concomitant]
     Indication: URINARY TRACT INFECTION
     Dates: end: 20090626

REACTIONS (5)
  - DRY MOUTH [None]
  - CREATININE RENAL CLEARANCE DECREASED [None]
  - GENERAL PHYSICAL HEALTH DETERIORATION [None]
  - HYPOTENSION [None]
  - HYPONATRAEMIA [None]
